FAERS Safety Report 11580275 (Version 1)
Quarter: 2015Q3

REPORT INFORMATION
  Report Type: Spontaneous
  Country: US (occurrence: US)
  Receive Date: 20150916
  Receipt Date: 20150916
  Transmission Date: 20151125
  Serious: No
  Sender: FDA-Public Use
  Company Number: US-ELI_LILLY_AND_COMPANY-US200804006524

PATIENT
  Age: 84 Year
  Sex: Female

DRUGS (1)
  1. FORTEO [Suspect]
     Active Substance: TERIPARATIDE
     Indication: BODY HEIGHT DECREASED
     Dates: start: 200712, end: 200801

REACTIONS (2)
  - Nervousness [Not Recovered/Not Resolved]
  - Asthenia [Not Recovered/Not Resolved]

NARRATIVE: CASE EVENT DATE: 200712
